FAERS Safety Report 18268811 (Version 5)
Quarter: 2021Q3

REPORT INFORMATION
  Report Type: Spontaneous
  Country: US (occurrence: US)
  Receive Date: 20200915
  Receipt Date: 20210823
  Transmission Date: 20211014
  Serious: No
  Sender: FDA-Public Use
  Company Number: US-PFIZER INC-2020353795

PATIENT
  Age: 52 Year
  Sex: Female

DRUGS (2)
  1. XELJANZ XR [Suspect]
     Active Substance: TOFACITINIB CITRATE
     Dosage: 11 MG, 1X/DAY
     Route: 048
     Dates: start: 20200820
  2. XELJANZ XR [Suspect]
     Active Substance: TOFACITINIB CITRATE
     Dosage: 11 MG, 1X/DAY
     Route: 048

REACTIONS (10)
  - Therapeutic product effect incomplete [Unknown]
  - Pain [Unknown]
  - Vomiting [Recovered/Resolved]
  - Viral infection [Recovered/Resolved]
  - Condition aggravated [Unknown]
  - Illness [Recovered/Resolved]
  - Liver function test increased [Unknown]
  - Therapeutic response unexpected [Unknown]
  - Headache [Recovered/Resolved]
  - Drug intolerance [Recovered/Resolved]
